FAERS Safety Report 6530284 (Version 6)
Quarter: 2014Q4

REPORT INFORMATION
  Report Type: Report from Study
  Country: NZ (occurrence: NZ)
  Receive Date: 20080118
  Receipt Date: 20141117
  Transmission Date: 20150529
  Serious: Yes (Disabling, Other)
  Sender: FDA-Public Use
  Company Number: PHHO2008NZ00755

PATIENT
  Age: 32 Year
  Sex: Male
  Weight: 60 kg

DRUGS (4)
  1. LDT600 [Suspect]
     Active Substance: TELBIVUDINE
     Indication: CHRONIC HEPATITIS B
     Dosage: 600 MG,UNK
     Route: 048
     Dates: start: 20070626, end: 20080101
  2. AMITRIPTYLINE [Suspect]
     Active Substance: AMITRIPTYLINE
     Indication: PRODUCT USED FOR UNKNOWN INDICATION
     Dosage: UNK
     Route: 065
  3. PEGASYS [Suspect]
     Active Substance: PEGINTERFERON ALFA-2A
     Indication: CHRONIC HEPATITIS B
     Dosage: 180 UG, UNK
     Route: 058
     Dates: start: 20070626, end: 20080102
  4. TEGRETOL [Suspect]
     Active Substance: CARBAMAZEPINE
     Indication: PRODUCT USED FOR UNKNOWN INDICATION
     Dosage: UNK
     Route: 065

REACTIONS (7)
  - Clumsiness [Recovered/Resolved]
  - Pain [Recovered/Resolved]
  - Somnolence [Recovered/Resolved]
  - Areflexia [Recovered/Resolved]
  - Peripheral sensory neuropathy [Recovered/Resolved]
  - Paraesthesia [Unknown]
  - Hypoaesthesia [Recovered/Resolved]

NARRATIVE: CASE EVENT DATE: 20071220
